FAERS Safety Report 16286920 (Version 1)
Quarter: 2019Q2

REPORT INFORMATION
  Report Type: Spontaneous
  Country: FR (occurrence: FR)
  Receive Date: 20190508
  Receipt Date: 20190508
  Transmission Date: 20190711
  Serious: Yes (Other)
  Sender: FDA-Public Use
  Company Number: FR-PFIZER INC-2019193856

PATIENT
  Age: 69 Year
  Sex: Female
  Weight: 60 kg

DRUGS (2)
  1. PACLITAXEL. [Suspect]
     Active Substance: PACLITAXEL
     Indication: CYSTADENOCARCINOMA OVARY
     Dosage: 228 MG, EVERY 3 WEEKS
     Route: 041
     Dates: start: 20121030, end: 20130214
  2. CARBOPLATIN. [Suspect]
     Active Substance: CARBOPLATIN
     Indication: CYSTADENOCARCINOMA OVARY
     Dosage: 410 MG, EVERY 3 WEEKS
     Route: 041
     Dates: start: 20121030, end: 20130214

REACTIONS (1)
  - Paraesthesia [Not Recovered/Not Resolved]

NARRATIVE: CASE EVENT DATE: 20121212
